FAERS Safety Report 17260621 (Version 1)
Quarter: 2020Q1

REPORT INFORMATION
  Report Type: Report from Study
  Country: US (occurrence: US)
  Receive Date: 20200113
  Receipt Date: 20200113
  Transmission Date: 20200409
  Serious: Yes (Death, Hospitalization, Other)
  Sender: FDA-Public Use
  Company Number: US-BRISTOL-MYERS SQUIBB COMPANY-BMS-2020-001100

PATIENT
  Age: 61 Year
  Sex: Male
  Weight: 104.4 kg

DRUGS (3)
  1. NIVOLUMAB [Suspect]
     Active Substance: NIVOLUMAB
     Indication: BLADDER TRANSITIONAL CELL CARCINOMA
     Dosage: 106 MILLIGRAM
     Route: 065
     Dates: start: 20191118, end: 20191209
  2. IPILIMUMAB [Suspect]
     Active Substance: IPILIMUMAB
     Indication: BLADDER TRANSITIONAL CELL CARCINOMA
     Dosage: 106 MILLIGRAM
     Route: 065
     Dates: start: 20191118, end: 20191209
  3. CABOZANTINIB [Suspect]
     Active Substance: CABOZANTINIB
     Indication: BLADDER TRANSITIONAL CELL CARCINOMA
     Dosage: 320 MILLIGRAM
     Route: 065
     Dates: start: 20191118, end: 20191216

REACTIONS (3)
  - Malignant neoplasm progression [Fatal]
  - Hepatic failure [Fatal]
  - Dehydration [Unknown]

NARRATIVE: CASE EVENT DATE: 20191217
